FAERS Safety Report 8479170-4 (Version None)
Quarter: 2012Q2

REPORT INFORMATION
  Report Type: 
  Country: None (occurrence: None)
  Receive Date: 20120402
  Receipt Date: 20111123
  Transmission Date: 20120825
  Serious: Yes (Life-Threatening)
  Sender: FDA-Public Use
  Company Number: 2011ST000468

PATIENT
  Age: 15 Year
  Sex: Female
  Weight: 49 kg

DRUGS (4)
  1. VINCRISTINE [Concomitant]
  2. ONCASPAR [Suspect]
     Indication: ACUTE LYMPHOCYTIC LEUKAEMIA
     Dosage: 3450 IU;X1;IM
     Route: 030
     Dates: start: 20110622, end: 20110622
  3. MERCAPTOPURINE [Concomitant]
  4. COTRIM [Concomitant]

REACTIONS (4)
  - HYPERSENSITIVITY [None]
  - URTICARIA [None]
  - PRURITUS [None]
  - LIP SWELLING [None]
